FAERS Safety Report 7016869-0 (Version None)
Quarter: 2010Q3

REPORT INFORMATION
  Report Type: 
  Country: None (occurrence: None)
  Receive Date: 20100927
  Receipt Date: 20100915
  Transmission Date: 20110219
  Serious: Yes (Hospitalization)
  Sender: FDA-Public Use
  Company Number: JP-AMGEN-QUU440808

PATIENT
  Age: 69 Year
  Sex: Female

DRUGS (2)
  1. ENBREL [Suspect]
     Indication: RHEUMATOID ARTHRITIS
     Dosage: RESUMED AT UNSPECIFIED DOSE
     Dates: start: 20100915
  2. ENBREL [Suspect]

REACTIONS (1)
  - CEREBRAL HAEMORRHAGE [None]
